FAERS Safety Report 22275747 (Version 3)
Quarter: 2023Q4

REPORT INFORMATION
  Report Type: Spontaneous
  Country: CA (occurrence: CA)
  Receive Date: 20230502
  Receipt Date: 20231130
  Transmission Date: 20240110
  Serious: Yes (Hospitalization, Other)
  Sender: FDA-Public Use
  Company Number: E2B_06174379

PATIENT
  Sex: Male

DRUGS (16)
  1. SOLIRIS [Suspect]
     Active Substance: ECULIZUMAB
     Indication: Atypical haemolytic uraemic syndrome
     Dosage: 900 MILLIGRAM, QW
     Route: 042
  2. SOLIRIS [Suspect]
     Active Substance: ECULIZUMAB
     Indication: Thrombotic microangiopathy
     Dosage: 900 MILLIGRAM, Q2W
     Route: 042
  3. SOLIRIS [Suspect]
     Active Substance: ECULIZUMAB
     Dosage: 1200 MILLIGRAM, Q2W
     Route: 042
     Dates: end: 20210113
  4. SOLIRIS [Suspect]
     Active Substance: ECULIZUMAB
     Dosage: 600 MILLIGRAM, Q2W
     Route: 042
     Dates: start: 20210127, end: 20210210
  5. SOLIRIS [Suspect]
     Active Substance: ECULIZUMAB
     Dosage: 900 MILLIGRAM, Q2W
     Route: 042
     Dates: start: 20210224, end: 20210401
  6. SOLIRIS [Suspect]
     Active Substance: ECULIZUMAB
     Dosage: 600 MILLIGRAM, QW
     Route: 042
     Dates: start: 20210414, end: 20220302
  7. SOLIRIS [Suspect]
     Active Substance: ECULIZUMAB
     Dosage: 600 MILLIGRAM, Q2W
     Route: 042
     Dates: start: 20220316, end: 20220720
  8. SOLIRIS [Suspect]
     Active Substance: ECULIZUMAB
     Dosage: 600 MILLIGRAM
     Route: 042
     Dates: start: 20220922
  9. SOLIRIS [Suspect]
     Active Substance: ECULIZUMAB
     Dosage: 900 MILLIGRAM
     Route: 042
     Dates: start: 20220928
  10. SOLIRIS [Suspect]
     Active Substance: ECULIZUMAB
     Dosage: 600 MILLIGRAM
     Route: 042
     Dates: start: 20221004
  11. PFIZER-BIONTECH COVID-19 VACCINE [Suspect]
     Active Substance: TOZINAMERAN
     Indication: COVID-19 immunisation
     Dosage: UNK
     Route: 065
     Dates: start: 20221201, end: 20221201
  12. AMLODIPINE [Concomitant]
     Active Substance: AMLODIPINE BESYLATE
     Indication: Product used for unknown indication
     Dosage: UNK
     Route: 065
  13. ASACOL [Concomitant]
     Active Substance: MESALAMINE
     Indication: Product used for unknown indication
     Dosage: UNK
     Route: 065
  14. METOPROLOL [Concomitant]
     Active Substance: METOPROLOL
     Indication: Product used for unknown indication
     Dosage: UNK
     Route: 065
  15. RAMIPRIL [Concomitant]
     Active Substance: RAMIPRIL
     Indication: Product used for unknown indication
     Dosage: UNK
     Route: 065
  16. TINZAPARIN [Concomitant]
     Active Substance: TINZAPARIN
     Indication: Product used for unknown indication
     Dosage: UNK
     Route: 065

REACTIONS (18)
  - Chronic kidney disease [Unknown]
  - Laboratory test abnormal [Unknown]
  - Suspected COVID-19 [Unknown]
  - Diarrhoea haemorrhagic [Recovering/Resolving]
  - Diarrhoea [Recovering/Resolving]
  - Renal impairment [Unknown]
  - Rectal haemorrhage [Unknown]
  - Pulmonary embolism [Unknown]
  - Haemorrhoidal haemorrhage [Unknown]
  - Helicobacter infection [Unknown]
  - Platelet count decreased [Unknown]
  - Superficial vein thrombosis [Unknown]
  - Hypersensitivity [Recovered/Resolved]
  - Off label use [Unknown]
  - Gastrointestinal pain [Unknown]
  - Abdominal pain [Unknown]
  - Headache [Recovered/Resolved]
  - Chest pain [Unknown]

NARRATIVE: CASE EVENT DATE: 20220101
